FAERS Safety Report 9963413 (Version 3)
Quarter: 2014Q2

REPORT INFORMATION
  Report Type: Spontaneous
  Country: IT (occurrence: IT)
  Receive Date: 20140305
  Receipt Date: 20140421
  Transmission Date: 20141212
  Serious: Yes (Hospitalization)
  Sender: FDA-Public Use
  Company Number: IT-BRISTOL-MYERS SQUIBB COMPANY-20312773

PATIENT
  Age: 75 Year
  Sex: Female

DRUGS (1)
  1. COUMADIN TABS 5 MG [Suspect]
     Indication: CARDIAC DISORDER
     Route: 048
     Dates: start: 20120101, end: 20131210

REACTIONS (2)
  - Circulatory collapse [Unknown]
  - International normalised ratio increased [Unknown]
